FAERS Safety Report 13988588 (Version 2)
Quarter: 2017Q3

REPORT INFORMATION
  Report Type: Spontaneous
  Country: US (occurrence: US)
  Receive Date: 20170919
  Receipt Date: 20170929
  Transmission Date: 20171128
  Serious: No
  Sender: FDA-Public Use
  Company Number: US-ACTELION-A-NJ2017-159218

PATIENT
  Age: 69 Year
  Sex: Female
  Weight: 82.54 kg

DRUGS (4)
  1. AMLODIPINE [Concomitant]
     Active Substance: AMLODIPINE BESYLATE
  2. UPTRAVI [Suspect]
     Active Substance: SELEXIPAG
     Dosage: 200 MCG, BID
     Route: 048
     Dates: start: 20170830
  3. UPTRAVI [Suspect]
     Active Substance: SELEXIPAG
     Indication: PULMONARY ARTERIAL HYPERTENSION
     Dosage: 400 MCG, BID
     Route: 048
     Dates: start: 20170911, end: 20170912
  4. SILDENAFIL CITRATE. [Concomitant]
     Active Substance: SILDENAFIL CITRATE

REACTIONS (9)
  - Nausea [Unknown]
  - Chills [Unknown]
  - Myalgia [Unknown]
  - Pain in extremity [Unknown]
  - Pain in jaw [Unknown]
  - Headache [Unknown]
  - Musculoskeletal pain [Unknown]
  - Malaise [Unknown]
  - Spinal pain [Unknown]

NARRATIVE: CASE EVENT DATE: 2017
